FAERS Safety Report 8521237-6 (Version None)
Quarter: 2012Q3

REPORT INFORMATION
  Report Type: 
  Country: None (occurrence: None)
  Receive Date: 20120712
  Receipt Date: 20120712
  Transmission Date: 20120928
  Serious: Yes (Other)
  Sender: FDA-Public Use
  Company Number: None

PATIENT
  Age: 76 Year
  Sex: Male
  Weight: 83 kg

DRUGS (25)
  1. ACETAMINOPHEN [Concomitant]
  2. BISACODYL [Concomitant]
  3. HEPARIN [Concomitant]
  4. HYDROCODONE/CHLORPHENIRAMINE [Concomitant]
  5. PIPERACILLIN AND TAZOBACTAM [Concomitant]
  6. AMIODARONE HYDROCHLORIDE [Concomitant]
  7. DIPHENHYDRAMINE HCL [Concomitant]
  8. ONDANSETRON [Concomitant]
  9. ALBUTEROL SULFATE AND IPRATROPIUM BROMIDE [Concomitant]
  10. ACETAMINOPHEN/HYDROCODONE BITARTRATE [Concomitant]
  11. INSULIN LISPRO [Concomitant]
  12. METOCLOPRAMIDE [Concomitant]
  13. PANTOPRAZOLE [Concomitant]
  14. FUROSEMIDE [Concomitant]
  15. FENTANYL [Concomitant]
  16. MORPHINE SULFATE [Concomitant]
  17. NALOXONE [Concomitant]
  18. PHENYLEPHRINE HCL [Concomitant]
  19. PROMETHAZINE [Concomitant]
  20. CLINDAMYCIN PHOSPHATE [Suspect]
     Indication: PERICARDIAL DISEASE
     Dosage: 600 MG Q8 HOURS IV
     Route: 042
     Dates: start: 20120618, end: 20120620
  21. CLINDAMYCIN PHOSPHATE [Suspect]
     Indication: INFECTION
     Dosage: 600 MG Q8 HOURS IV
     Route: 042
     Dates: start: 20120618, end: 20120620
  22. GUAIFENESIN [Concomitant]
  23. HYDROMORPHONE HCL [Concomitant]
  24. DOCUSATE [Concomitant]
  25. OXYMETOZOL [Concomitant]

REACTIONS (2)
  - ACUTE HEPATIC FAILURE [None]
  - LIVER INJURY [None]
